FAERS Safety Report 7113807-7 (Version None)
Quarter: 2010Q4

REPORT INFORMATION
  Report Type: 
  Country: None (occurrence: None)
  Receive Date: 20101119
  Receipt Date: 20101108
  Transmission Date: 20110411
  Serious: Yes (Hospitalization)
  Sender: FDA-Public Use
  Company Number: DE-ACTELION-A-US2010-41603

PATIENT

DRUGS (1)
  1. ILOPROST INHALATION ROW [Suspect]
     Indication: PULMONARY ARTERIAL HYPERTENSION
     Route: 055

REACTIONS (1)
  - CALCINOSIS [None]
